FAERS Safety Report 4376505-9 (Version None)
Quarter: 2004Q2

REPORT INFORMATION
  Report Type: 
  Country: None (occurrence: None)
  Receive Date: 20040611
  Receipt Date: 20040611
  Transmission Date: 20050107
  Serious: Yes (Other)
  Sender: FDA-Public Use
  Company Number: None

PATIENT
  Sex: Female
  Weight: 81 kg

DRUGS (1)
  1. DEFEROXAMINE MESYLATE [Suspect]
     Indication: BLOOD IRON INCREASED
     Dosage: 2000 MG SQ QD
     Route: 058
     Dates: start: 20040522

REACTIONS (3)
  - BURNING SENSATION [None]
  - ERYTHEMA [None]
  - URTICARIA [None]
